FAERS Safety Report 22087232 (Version 1)
Quarter: 2023Q1

REPORT INFORMATION
  Report Type: Spontaneous
  Country: US (occurrence: US)
  Receive Date: 20230313
  Receipt Date: 20230313
  Transmission Date: 20230418
  Serious: No
  Sender: FDA-Public Use
  Company Number: US-drreddys-SPO/USA/23/0160058

PATIENT
  Age: 82 Year
  Sex: Male

DRUGS (2)
  1. ROPINIROLE [Suspect]
     Active Substance: ROPINIROLE
     Indication: Product used for unknown indication
     Dosage: 1 AT BREAKFAST AND 1 IN THE EVENING
  2. Carbidopa levoer [Concomitant]
     Indication: Product used for unknown indication
     Dosage: 25/100

REACTIONS (2)
  - Drug ineffective [Unknown]
  - Product quality issue [Unknown]
